FAERS Safety Report 14613603 (Version 9)
Quarter: 2020Q3

REPORT INFORMATION
  Report Type: Spontaneous
  Country: US (occurrence: US)
  Receive Date: 20180308
  Receipt Date: 20200902
  Transmission Date: 20201102
  Serious: No
  Sender: FDA-Public Use
  Company Number: US-PFIZER INC-2018089609

PATIENT
  Age: 3 Year
  Sex: Male
  Weight: 15.42 kg

DRUGS (4)
  1. GENOTROPIN [Suspect]
     Active Substance: SOMATROPIN
     Dosage: 0.4 MG, DAILY
     Route: 058
     Dates: start: 201601, end: 20191024
  2. GENOTROPIN [Suspect]
     Active Substance: SOMATROPIN
     Indication: GROWTH HORMONE DEFICIENCY
     Dosage: 0.5 MG, ONCE DAILY, SIX NIGHTS PER WEEK
     Dates: start: 201803
  3. GENOTROPIN [Suspect]
     Active Substance: SOMATROPIN
     Indication: PITUITARY CYST
     Dosage: 0.4 MG, DAILY
     Dates: start: 20180331
  4. GENOTROPIN [Suspect]
     Active Substance: SOMATROPIN
     Dosage: 0.5 MG, DAILY
     Dates: start: 20180331

REACTIONS (8)
  - Off label use [Unknown]
  - Device leakage [Unknown]
  - Wrong technique in product usage process [Unknown]
  - Product use in unapproved indication [Unknown]
  - Drug dose omission by device [Unknown]
  - Device breakage [Unknown]
  - Hypertrichosis [Unknown]
  - Insulin-like growth factor increased [Unknown]

NARRATIVE: CASE EVENT DATE: 20191024
